FAERS Safety Report 7599647-3 (Version None)
Quarter: 2011Q2

REPORT INFORMATION
  Report Type: 
  Country: None (occurrence: None)
  Receive Date: 20110629
  Receipt Date: 20110620
  Transmission Date: 20111010
  Serious: Yes (Life-Threatening)
  Sender: FDA-Public Use
  Company Number: 1000021751

PATIENT
  Age: 74 Year
  Sex: Male

DRUGS (6)
  1. AMIODARONE HYDROCHLORIDE [Suspect]
     Indication: ATRIAL FIBRILLATION
     Dosage: 200 MG (200 MG,1 IN 1 D),ORAL
     Route: 048
     Dates: start: 20070101, end: 20110113
  2. NAVIXEN PLUS (EPROSARTAN MESILATE, HYDROCHLOROTHIAZIDE) [Suspect]
     Indication: HYPERTENSION
     Dosage: ORAL
     Route: 048
     Dates: start: 20080101, end: 20110113
  3. RILAST (BUDESONIDE, FORMOTEROL FUMARATE) (BUDESONIDE, FORMOTEROL FUMAR [Concomitant]
  4. SINTROM (ACENOCOUMAROL) (ACENOCOUMAROL) [Concomitant]
  5. TRIAZOLAM [Concomitant]
  6. NEBIVOLOL HCL [Suspect]
     Indication: HYPERTENSION
     Dosage: 2.5 MG (2.5 MG,1 IN 1 D),ORAL
     Route: 048
     Dates: start: 20070101, end: 20110113

REACTIONS (8)
  - RENAL TUBULAR NECROSIS [None]
  - RENAL FAILURE ACUTE [None]
  - HYPERKALAEMIA [None]
  - CARDIO-RESPIRATORY ARREST [None]
  - DRUG INTERACTION [None]
  - PRODUCTIVE COUGH [None]
  - HAEMODIALYSIS [None]
  - PYREXIA [None]
